FAERS Safety Report 20390953 (Version 1)
Quarter: 2022Q1

REPORT INFORMATION
  Report Type: Spontaneous
  Country: MY (occurrence: MY)
  Receive Date: 20220128
  Receipt Date: 20220128
  Transmission Date: 20220423
  Serious: Yes (Hospitalization, Other)
  Sender: FDA-Public Use
  Company Number: MY-ABBVIE-22K-101-4248240-00

PATIENT
  Age: 20 Year
  Sex: Male

DRUGS (3)
  1. VALPROATE SODIUM [Suspect]
     Active Substance: VALPROATE SODIUM
     Indication: Partial seizures
     Dosage: 600/400 MG
     Route: 065
  2. VALPROATE SODIUM [Suspect]
     Active Substance: VALPROATE SODIUM
     Dosage: 600/400 MG DOSE INCREASED FOR THE PAST 3 WEEKS
     Route: 048
  3. PHENYTOIN [Suspect]
     Active Substance: PHENYTOIN
     Indication: Partial seizures
     Route: 048

REACTIONS (5)
  - Toxicity to various agents [Recovered/Resolved]
  - Blindness [Recovered/Resolved]
  - Delirium [Recovered/Resolved]
  - Seizure [Unknown]
  - Overdose [Unknown]
